FAERS Safety Report 7969996-5 (Version None)
Quarter: 2011Q4

REPORT INFORMATION
  Report Type: 
  Country: None (occurrence: None)
  Receive Date: 20111212
  Receipt Date: 20111205
  Transmission Date: 20120403
  Serious: Yes (Other)
  Sender: FDA-Public Use
  Company Number: CH-US-EMD SERONO, INC.-7089923

PATIENT
  Sex: Female
  Weight: 75 kg

DRUGS (1)
  1. REBIF [Suspect]
     Indication: MULTIPLE SCLEROSIS
     Route: 058
     Dates: start: 20101101, end: 20110901

REACTIONS (3)
  - HYPOTHYROIDISM [None]
  - AUTOIMMUNE THYROIDITIS [None]
  - PANCYTOPENIA [None]
